FAERS Safety Report 15450744 (Version 1)
Quarter: 2018Q3

REPORT INFORMATION
  Report Type: Spontaneous
  Country: US (occurrence: US)
  Receive Date: 20180926
  Receipt Date: 20180926
  Transmission Date: 20181010
  Serious: No
  Sender: FDA-Public Use
  Company Number: None

PATIENT
  Age: 76 Year
  Sex: Male

DRUGS (4)
  1. CAPECITABINE TAB 500MG [Suspect]
     Active Substance: CAPECITABINE
  2. GABAPENTIN. [Concomitant]
     Active Substance: GABAPENTIN
  3. CAPECITABINE TAB 500MG [Suspect]
     Active Substance: CAPECITABINE
     Indication: COLON CANCER
     Route: 048
     Dates: start: 201808
  4. CLOPIDOGREL METFORMIN [Concomitant]

REACTIONS (2)
  - Dizziness [None]
  - Neuropathy peripheral [None]

NARRATIVE: CASE EVENT DATE: 20180921
